FAERS Safety Report 4732803-8 (Version None)
Quarter: 2005Q3

REPORT INFORMATION
  Report Type: 
  Country: None (occurrence: None)
  Receive Date: 20050801
  Receipt Date: 20050801
  Transmission Date: 20060218
  Serious: No
  Sender: FDA-Public Use
  Company Number: None

PATIENT
  Sex: Male
  Weight: 70.3075 kg

DRUGS (1)
  1. ATENOLOL [Suspect]
     Indication: HEART RATE IRREGULAR
     Dosage: 1 TABLET   DAILY   ORAL
     Route: 048
     Dates: start: 20050715, end: 20050718

REACTIONS (3)
  - FATIGUE [None]
  - HEART RATE IRREGULAR [None]
  - PHARMACEUTICAL PRODUCT COMPLAINT [None]
